FAERS Safety Report 10504569 (Version 1)
Quarter: 2014Q3

REPORT INFORMATION
  Report Type: Spontaneous
  Country: US (occurrence: None)
  Receive Date: 20140912
  Receipt Date: 20140912
  Transmission Date: 20150326
  Serious: Yes (Other)
  Sender: FDA-Public Use
  Company Number: 1000066894

PATIENT
  Age: 71 Year
  Sex: Female

DRUGS (3)
  1. DALIRESP (RAFLUMIILAST) (500 MICROGRA, TABLETS) [Suspect]
     Active Substance: ROFLUMILAST
     Indication: CHRONIC OBSTRUCTIVE PULMONARY DISEASE
     Dates: start: 2014, end: 2014
  2. DALIRESP [Suspect]
     Active Substance: ROFLUMILAST
     Indication: CHRONIC OBSTRUCTIVE PULMONARY DISEASE
     Route: 048
     Dates: start: 201212, end: 201303
  3. FLUOXETINE [Concomitant]
     Active Substance: FLUOXETINE\FLUOXETINE HYDROCHLORIDE

REACTIONS (2)
  - Somnolence [None]
  - Weight decreased [None]

NARRATIVE: CASE EVENT DATE: 201212
